FAERS Safety Report 5017584-5 (Version None)
Quarter: 2006Q2

REPORT INFORMATION
  Report Type: 
  Country: None (occurrence: None)
  Receive Date: 20060601
  Receipt Date: 20060601
  Transmission Date: 20061013
  Serious: Yes (Other)
  Sender: FDA-Public Use
  Company Number: None

PATIENT
  Sex: Male
  Weight: 80.7403 kg

DRUGS (4)
  1. CARBOPLATIN [Suspect]
     Indication: CHEMOTHERAPY
     Dosage: AUC 6 EVERY 21 DAYS IV
     Route: 042
     Dates: start: 20060328, end: 20060509
  2. DOCETAXEL [Suspect]
     Indication: CHEMOTHERAPY
     Dosage: 75 MG/M2 EVERY 21 DAYS IV
     Route: 042
     Dates: start: 20060328, end: 20060509
  3. DECADRON [Suspect]
     Indication: HYPERSENSITIVITY
     Dosage: 4 MG X 3 DAYS TWICE DAILY ORAL
     Route: 048
     Dates: start: 20060508, end: 20060510
  4. DECADRON [Suspect]
     Indication: PROPHYLAXIS
     Dosage: 4 MG X 3 DAYS TWICE DAILY ORAL
     Route: 048
     Dates: start: 20060508, end: 20060510

REACTIONS (2)
  - PSYCHOTIC DISORDER [None]
  - SUICIDAL IDEATION [None]
